FAERS Safety Report 6577327-0 (Version None)
Quarter: 2010Q1

REPORT INFORMATION
  Report Type: 
  Country: None (occurrence: None)
  Receive Date: 20100210
  Receipt Date: 20100121
  Transmission Date: 20100710
  Serious: Yes (Other)
  Sender: FDA-Public Use
  Company Number: US-GENENTECH-297943

PATIENT
  Sex: Female
  Weight: 81.633 kg

DRUGS (10)
  1. XOLAIR [Suspect]
     Indication: ASTHMA
     Dosage: 150 MG, Q2W
     Route: 058
     Dates: start: 20070207
  2. QVAR 40 [Concomitant]
     Indication: ASTHMA
     Dosage: 2 PUFF, BID
  3. ADVAIR DISKUS 100/50 [Concomitant]
     Indication: DRUG USE FOR UNKNOWN INDICATION
     Dosage: UNK
     Route: 048
  4. ZYRTEC [Concomitant]
     Indication: CHRONIC SINUSITIS
     Dosage: 10 MG, QPM
     Route: 048
  5. PROAIR HFA [Concomitant]
     Indication: ASTHMA
     Dosage: 2 PUFF, PRN
  6. NASACORT [Concomitant]
     Indication: CHRONIC SINUSITIS
     Dosage: 1 UNK, QD
  7. PREDNISONE [Concomitant]
     Indication: CHRONIC SINUSITIS
     Dosage: 50 MG, UNK
  8. PRILOSEC [Concomitant]
     Indication: GASTROOESOPHAGEAL REFLUX DISEASE
     Dosage: UNK
  9. ALBUTEROL SULFATE AUTOHALER [Concomitant]
     Indication: ASTHMA
     Dosage: UNK
  10. XOPENEX [Concomitant]
     Indication: ASTHMA
     Dosage: UNK

REACTIONS (1)
  - DYSPNOEA [None]
